FAERS Safety Report 4578483-6 (Version None)
Quarter: 2005Q1

REPORT INFORMATION
  Report Type: 
  Country: None (occurrence: None)
  Receive Date: 20050209
  Receipt Date: 20041108
  Transmission Date: 20050727
  Serious: Yes (Other)
  Sender: FDA-Public Use
  Company Number: 2004090813

PATIENT
  Sex: Male

DRUGS (3)
  1. BEXTRA [Suspect]
     Indication: ARTHRITIS
     Dosage: 40 MG (20 MG, 2 IN 1 D), ORAL
     Route: 048
  2. PRIMIDONE (PRIMIDONE0 [Concomitant]
  3. PROPRANOLOL [Concomitant]

REACTIONS (10)
  - ASTHENIA [None]
  - DRUG EFFECT DECREASED [None]
  - DRUG INEFFECTIVE [None]
  - FACIAL PALSY [None]
  - FEELING ABNORMAL [None]
  - PAIN IN EXTREMITY [None]
  - PARAESTHESIA [None]
  - SCIATICA [None]
  - VISION BLURRED [None]
  - WEIGHT INCREASED [None]
